FAERS Safety Report 10545020 (Version 2)
Quarter: 2015Q2

REPORT INFORMATION
  Report Type: Spontaneous
  Country: US (occurrence: US)
  Receive Date: 20141027
  Receipt Date: 20150519
  Transmission Date: 20150821
  Serious: Yes (Hospitalization)
  Sender: FDA-Public Use
  Company Number: US-BAYER-2014-155607

PATIENT
  Age: 21 Year
  Sex: Female
  Weight: 63.49 kg

DRUGS (2)
  1. MIRENA [Suspect]
     Active Substance: LEVONORGESTREL
     Indication: CONTRACEPTION
     Dosage: 20 MCG/24HR, CONT
     Route: 015
     Dates: start: 20061011, end: 20080606
  2. ESTRACE [Concomitant]
     Active Substance: ESTRADIOL

REACTIONS (7)
  - Uterine perforation [None]
  - Injury [None]
  - Device issue [None]
  - Stress [None]
  - Fear of disease [None]
  - Device dislocation [None]
  - Scar [None]

NARRATIVE: CASE EVENT DATE: 200805
